FAERS Safety Report 20936320 (Version 2)
Quarter: 2022Q2

REPORT INFORMATION
  Report Type: Spontaneous
  Country: DE (occurrence: DE)
  Receive Date: 20220609
  Receipt Date: 20220623
  Transmission Date: 20220720
  Serious: Yes (Death, Hospitalization)
  Sender: FDA-Public Use
  Company Number: DE-TEVA-2022-DE-2043486

PATIENT
  Age: 71 Year
  Sex: Male

DRUGS (10)
  1. CEFTRIAXONE [Suspect]
     Active Substance: CEFTRIAXONE
     Indication: Paraneoplastic pemphigus
     Dosage: 2 GRAM DAILY;
     Route: 065
     Dates: start: 2021
  2. LINEZOLID [Suspect]
     Active Substance: LINEZOLID
     Indication: Paraneoplastic pemphigus
     Route: 065
     Dates: start: 2021
  3. PIPERACILLIN SODIUM\TAZOBACTAM SODIUM [Suspect]
     Active Substance: PIPERACILLIN SODIUM\TAZOBACTAM SODIUM
     Indication: Paraneoplastic pemphigus
     Dosage: 18 GRAM DAILY;
     Route: 065
     Dates: start: 2021
  4. VORICONAZOLE [Suspect]
     Active Substance: VORICONAZOLE
     Indication: Paraneoplastic pemphigus
     Route: 065
     Dates: start: 2021
  5. OBINUTUZUMAB [Suspect]
     Active Substance: OBINUTUZUMAB
     Indication: Follicular lymphoma stage IV
     Dosage: STARTING DOSE (ABSOLUTE)
     Route: 065
     Dates: start: 202109
  6. OBINUTUZUMAB [Suspect]
     Active Substance: OBINUTUZUMAB
     Dosage: SECOND ADMINISTRATION
     Route: 065
  7. PREDNISOLONE [Suspect]
     Active Substance: PREDNISOLONE
     Indication: Paraneoplastic pemphigus
     Dosage: 500 MILLIGRAM DAILY; HIGH DOSE
     Route: 042
     Dates: start: 2021
  8. MEROPENEM [Suspect]
     Active Substance: MEROPENEM
     Indication: Paraneoplastic pemphigus
     Route: 065
     Dates: start: 2021
  9. GANCICLOVIR [Suspect]
     Active Substance: GANCICLOVIR
     Indication: Paraneoplastic pemphigus
     Route: 065
     Dates: start: 2021
  10. BENDAMUSTINE [Concomitant]
     Active Substance: BENDAMUSTINE
     Indication: Follicular lymphoma stage IV
     Dosage: ON DAY 1 AND 2
     Route: 065
     Dates: start: 202109

REACTIONS (8)
  - Paraneoplastic pemphigus [Fatal]
  - Respiratory failure [Fatal]
  - Pseudomonas infection [Fatal]
  - Cytomegalovirus infection [Fatal]
  - Aspergillus infection [Fatal]
  - Candida infection [Fatal]
  - Pneumomediastinum [Fatal]
  - Drug ineffective [Unknown]

NARRATIVE: CASE EVENT DATE: 20210101
